FAERS Safety Report 6347164-0 (Version None)
Quarter: 2009Q3

REPORT INFORMATION
  Report Type: 
  Country: None (occurrence: None)
  Receive Date: 20090910
  Receipt Date: 20090901
  Transmission Date: 20100115
  Serious: Yes (Hospitalization)
  Sender: FDA-Public Use
  Company Number: FR-ROCHE-653620

PATIENT
  Age: 53 Year
  Sex: Female

DRUGS (3)
  1. RIVOTRIL [Suspect]
     Dosage: 2.5 MG/ML DROPS
     Route: 048
  2. LYRICA [Suspect]
     Route: 048
     Dates: start: 20090608
  3. EFFERALGAN [Suspect]
     Route: 048

REACTIONS (1)
  - PANCREATITIS ACUTE [None]
